FAERS Safety Report 5313948-0 (Version None)
Quarter: 2007Q2

REPORT INFORMATION
  Report Type: 
  Country: None (occurrence: None)
  Receive Date: 20070501
  Receipt Date: 20070419
  Transmission Date: 20071010
  Serious: Yes (Other)
  Sender: FDA-Public Use
  Company Number: US-PFIZER INC-2007007375

PATIENT
  Age: 61 Year
  Sex: Female
  Weight: 115.2 kg

DRUGS (6)
  1. LYRICA [Suspect]
     Indication: DIABETIC NEUROPATHY
     Route: 048
  2. PLAVIX [Concomitant]
     Dosage: DAILY DOSE:75MG
  3. ZOCOR [Concomitant]
     Dosage: DAILY DOSE:40MG-FREQ:AT BEDTIME
  4. INSULIN [Concomitant]
  5. PLENDIL [Concomitant]
     Dosage: DAILY DOSE:2.5MG
  6. HUMULIN N [Concomitant]
     Route: 058

REACTIONS (4)
  - CEREBRAL INFARCTION [None]
  - EYELID PTOSIS [None]
  - IIIRD NERVE PARALYSIS [None]
  - VISION BLURRED [None]
